FAERS Safety Report 11966238 (Version 4)
Quarter: 2019Q4

REPORT INFORMATION
  Report Type: Report from Study
  Country: CO (occurrence: CO)
  Receive Date: 20160127
  Receipt Date: 20191224
  Transmission Date: 20200122
  Serious: Yes (Other)
  Sender: FDA-Public Use
  Company Number: CO-JNJFOC-20160119672

PATIENT
  Age: 44 Year
  Sex: Female
  Weight: 74 kg

DRUGS (3)
  1. SIMPONI [Suspect]
     Active Substance: GOLIMUMAB
     Route: 058
     Dates: start: 20151219
  2. SIMPONI [Suspect]
     Active Substance: GOLIMUMAB
     Indication: RHEUMATOID ARTHRITIS
     Route: 058
     Dates: start: 20120321
  3. METHOTREXATE. [Concomitant]
     Active Substance: METHOTREXATE
     Route: 065

REACTIONS (3)
  - Urinary tract infection [Not Recovered/Not Resolved]
  - Drug ineffective [Unknown]
  - Inflammation [Not Recovered/Not Resolved]

NARRATIVE: CASE EVENT DATE: 20151001
